FAERS Safety Report 9812089 (Version 2)
Quarter: 2014Q1

REPORT INFORMATION
  Report Type: Spontaneous
  Country: JP (occurrence: JP)
  Receive Date: 20140111
  Receipt Date: 20140116
  Transmission Date: 20141002
  Serious: Yes (Hospitalization)
  Sender: FDA-Public Use
  Company Number: JP-ASTRAZENECA-2014SE01703

PATIENT
  Age: 28279 Day
  Sex: Female
  Weight: 47 kg

DRUGS (10)
  1. NEXIUM [Suspect]
     Indication: GASTROOESOPHAGEAL REFLUX DISEASE
     Route: 048
     Dates: start: 20121017, end: 20131219
  2. NEXIUM [Suspect]
     Indication: GASTROOESOPHAGEAL REFLUX DISEASE
     Route: 048
     Dates: start: 20131225, end: 20131228
  3. MEMARY [Suspect]
     Indication: DEMENTIA ALZHEIMER^S TYPE
     Route: 048
     Dates: start: 20130605, end: 20131219
  4. MEMARY [Suspect]
     Indication: DEMENTIA ALZHEIMER^S TYPE
     Route: 048
     Dates: start: 20131225, end: 20131228
  5. MAGNESIUM OXIDE [Suspect]
     Indication: CONSTIPATION
     Route: 048
     Dates: end: 20131219
  6. MAGNESIUM OXIDE [Suspect]
     Indication: CONSTIPATION
     Route: 048
     Dates: start: 20131225, end: 20131228
  7. TOLEDOMIN [Suspect]
     Indication: DEPRESSION
     Route: 048
     Dates: end: 20131219
  8. TOLEDOMIN [Suspect]
     Indication: DEPRESSION
     Route: 048
     Dates: start: 20131225, end: 20131228
  9. GASMOTIN [Suspect]
     Indication: GASTRITIS
     Route: 048
     Dates: end: 20131219
  10. GASMOTIN [Suspect]
     Indication: GASTRITIS
     Route: 048
     Dates: start: 20131225, end: 20131228

REACTIONS (1)
  - Drug-induced liver injury [Recovering/Resolving]
